FAERS Safety Report 15960559 (Version 1)
Quarter: 2019Q1

REPORT INFORMATION
  Report Type: Spontaneous
  Country: US (occurrence: US)
  Receive Date: 20190122
  Receipt Date: 20190122
  Transmission Date: 20190417
  Serious: No
  Sender: FDA-Public Use
  Company Number: None

PATIENT
  Age: 55 Year
  Sex: Female

DRUGS (1)
  1. XELJANZ [Suspect]
     Active Substance: TOFACITINIB CITRATE
     Indication: ARTHROPATHY
     Route: 048
     Dates: start: 20170522

REACTIONS (6)
  - Nail disorder [None]
  - Vomiting [None]
  - Migraine [None]
  - Skin exfoliation [None]
  - Pyrexia [None]
  - Onychoclasis [None]

NARRATIVE: CASE EVENT DATE: 201901
